FAERS Safety Report 12607814 (Version 1)
Quarter: 2016Q3

REPORT INFORMATION
  Report Type: Report from Study
  Country: US (occurrence: US)
  Receive Date: 20160729
  Receipt Date: 20160729
  Transmission Date: 20161109
  Serious: Yes (Other)
  Sender: FDA-Public Use
  Company Number: US-BAXALTA-2016BLT005408

PATIENT
  Sex: Female

DRUGS (1)
  1. GAMMAGARD LIQUID [Suspect]
     Active Substance: HUMAN IMMUNOGLOBULIN G
     Indication: PRIMARY IMMUNODEFICIENCY SYNDROME
     Dosage: UNK
     Route: 058

REACTIONS (6)
  - Gastroenteritis viral [Unknown]
  - Urinary tract infection [Unknown]
  - Adenoidal disorder [Unknown]
  - Thrombosis [Unknown]
  - Pharyngitis streptococcal [Unknown]
  - Tonsillar disorder [Unknown]
